FAERS Safety Report 18098814 (Version 3)
Quarter: 2021Q3

REPORT INFORMATION
  Report Type: Report from Study
  Country: US (occurrence: US)
  Receive Date: 20200731
  Receipt Date: 20210731
  Transmission Date: 20211014
  Serious: Yes (Other)
  Sender: FDA-Public Use
  Company Number: NVSC2020US213901

PATIENT
  Sex: Male

DRUGS (2)
  1. ENTRESTO [Suspect]
     Active Substance: SACUBITRIL\VALSARTAN
     Indication: VASCULAR STENT STENOSIS
     Dosage: UNK
     Route: 065
     Dates: start: 20190803
  2. ENTRESTO [Suspect]
     Active Substance: SACUBITRIL\VALSARTAN
     Indication: CARDIAC FAILURE CHRONIC
     Dosage: UNK
     Route: 065

REACTIONS (15)
  - Disorientation [Unknown]
  - Ascites [Unknown]
  - Hypertension [Unknown]
  - Hypoglycaemia [Unknown]
  - Injury [Unknown]
  - Cerebrovascular accident [Unknown]
  - Hypoaesthesia [Unknown]
  - Myocardial infarction [Unknown]
  - Abdominal distension [Unknown]
  - Weight increased [Unknown]
  - Dizziness [Unknown]
  - Heart rate increased [Unknown]
  - Back pain [Unknown]
  - Hypotension [Unknown]
  - Orthostatic hypotension [Unknown]
